FAERS Safety Report 9262344 (Version 1)
Quarter: 2013Q2

REPORT INFORMATION
  Report Type: Spontaneous
  Country: US (occurrence: None)
  Receive Date: 20130425
  Receipt Date: 20130425
  Transmission Date: 20140414
  Serious: No
  Sender: FDA-Public Use
  Company Number: None

PATIENT
  Age: 61 Year
  Sex: Male
  Weight: 90.72 kg

DRUGS (2)
  1. CHLORHEXIDINE GLUCONATE [Suspect]
     Indication: GINGIVITIS
     Dosage: 1/2 OUNCE; TWICE AFTER BRUSHI
     Route: 048
     Dates: start: 20130415, end: 20130424
  2. CHLORHEXIDINE GLUCONATE [Suspect]
     Dosage: 1/2 OUNCE; TWICE AFTER BRUSHI
     Route: 048
     Dates: start: 20130415, end: 20130424

REACTIONS (1)
  - Oesophageal pain [None]
